FAERS Safety Report 8165349 (Version 2)
Quarter: 2014Q1

REPORT INFORMATION
  Report Type: Spontaneous
  Country: US (occurrence: US)
  Receive Date: 20111003
  Receipt Date: 20140130
  Transmission Date: 20141002
  Serious: Yes (Hospitalization, Other)
  Sender: FDA-Public Use
  Company Number: US-JNJFOC-20110910792

PATIENT
  Age: 43 Year
  Sex: Female
  Weight: 88.91 kg

DRUGS (5)
  1. DURAGESIC [Suspect]
     Indication: BACK PAIN
     Route: 062
     Dates: end: 201010
  2. DURAGESIC [Suspect]
     Indication: BACK PAIN
     Route: 062
     Dates: start: 20110906, end: 201109
  3. DURAGESIC [Suspect]
     Indication: BACK PAIN
     Route: 062
     Dates: start: 201108, end: 20110906
  4. DURAGESIC [Suspect]
     Indication: BACK PAIN
     Route: 062
     Dates: start: 201109
  5. PERCOCET [Suspect]
     Indication: PRODUCT USED FOR UNKNOWN INDICATION
     Route: 065

REACTIONS (8)
  - Back pain [Not Recovered/Not Resolved]
  - Nervous system disorder [Not Recovered/Not Resolved]
  - Spinal disorder [Not Recovered/Not Resolved]
  - Gait disturbance [Recovered/Resolved]
  - Dermatitis [Not Recovered/Not Resolved]
  - Drug ineffective [Recovered/Resolved]
  - Product adhesion issue [Unknown]
  - Drug dose omission [Not Recovered/Not Resolved]
